FAERS Safety Report 5149852-0 (Version None)
Quarter: 2006Q4

REPORT INFORMATION
  Report Type: 
  Country: None (occurrence: None)
  Receive Date: 20061108
  Receipt Date: 20061027
  Transmission Date: 20070319
  Serious: Yes (Other)
  Sender: FDA-Public Use
  Company Number: 2006131872

PATIENT
  Age: 63 Year
  Sex: Male
  Weight: 104.3273 kg

DRUGS (2)
  1. NORVASC [Suspect]
     Indication: HYPERTENSION
     Dosage: 10 MG (5 MG, BID), ORAL; SEE IMAGE
     Route: 048
     Dates: start: 19960101
  2. LIPITOR [Suspect]
     Indication: HYPOCHOLESTEROLAEMIA
     Dosage: 40 MG (20 MG, BID), ORAL
     Route: 048
     Dates: start: 19980101, end: 20060101

REACTIONS (1)
  - DIABETES MELLITUS [None]
